FAERS Safety Report 21444984 (Version 1)
Quarter: 2022Q4

REPORT INFORMATION
  Report Type: Spontaneous
  Country: US (occurrence: None)
  Receive Date: 20221010
  Receipt Date: 20221010
  Transmission Date: 20230113
  Serious: No
  Sender: FDA-Public Use
  Company Number: None

PATIENT
  Sex: Female

DRUGS (25)
  1. PULMOZYME [Suspect]
     Active Substance: DORNASE ALFA
     Indication: Infective pulmonary exacerbation of cystic fibrosis
     Route: 055
     Dates: start: 20190627
  2. ADVAIR HFA INHALER [Concomitant]
  3. ALBUTEROL [Concomitant]
     Active Substance: ALBUTEROL
  4. ALBUTEROL INH PROAIR GEQ [Concomitant]
  5. BETHKIS NEB [Concomitant]
  6. BETHKIS [Concomitant]
     Active Substance: TOBRAMYCIN
  7. FLUCONAZOLE TAB [Concomitant]
  8. HYDROCO/APAP [Concomitant]
  9. LOPERAMIDE CAP [Concomitant]
  10. NYSTATIN [Concomitant]
     Active Substance: NYSTATIN
  11. ONDANSETRON TAB [Concomitant]
  12. OXYCODONE TAB [Concomitant]
  13. PHENAZOPYRID TAB [Concomitant]
  14. POT CHLORIDE TAB [Concomitant]
  15. PROPRANOLLOL TAB [Concomitant]
  16. SODIUM CHLOR NEB [Concomitant]
  17. STIOLTO AER [Concomitant]
  18. SYMDEKO [Concomitant]
     Active Substance: IVACAFTOR\TEZACAFTOR
  19. TAMSULOSIN [Concomitant]
     Active Substance: TAMSULOSIN
  20. TRANEXAMIC ACID [Concomitant]
     Active Substance: TRANEXAMIC ACID
  21. TRESIBA FLEX INJ [Concomitant]
  22. TRIKAFTA [Concomitant]
     Active Substance: ELEXACAFTOR\IVACAFTOR\TEZACAFTOR
  23. URSODIOL CAP [Concomitant]
  24. ZENPEP CAP [Concomitant]
  25. ZENPEP [Concomitant]
     Active Substance: PANCRELIPASE AMYLASE\PANCRELIPASE LIPASE\PANCRELIPASE PROTEASE

REACTIONS (1)
  - Pneumonia [None]
